FAERS Safety Report 18341662 (Version 2)
Quarter: 2020Q4

REPORT INFORMATION
  Report Type: Other
  Country: GB (occurrence: GB)
  Receive Date: 20201005
  Receipt Date: 20201008
  Transmission Date: 20210113
  Serious: Yes (Hospitalization)
  Sender: FDA-Public Use
  Company Number: GB-ROCHE-2688883

PATIENT
  Age: 46 Year
  Sex: Female

DRUGS (5)
  1. CLOBAZAM. [Suspect]
     Active Substance: CLOBAZAM
     Indication: PROCEDURAL SHOCK
     Route: 065
  2. DIAZEPAM. [Suspect]
     Active Substance: DIAZEPAM
     Indication: HEADACHE
     Route: 065
  3. LORAZEPAM. [Suspect]
     Active Substance: LORAZEPAM
     Indication: HEADACHE
     Route: 065
  4. ALPRAZOLAM. [Suspect]
     Active Substance: ALPRAZOLAM
     Indication: PROCEDURAL SHOCK
     Route: 065
  5. FLURAZEPAM [Suspect]
     Active Substance: FLURAZEPAM HYDROCHLORIDE
     Indication: PROCEDURAL SHOCK
     Route: 065

REACTIONS (2)
  - Drug withdrawal syndrome [Recovered/Resolved]
  - Drug dependence [Recovered/Resolved]
